FAERS Safety Report 15941903 (Version 2)
Quarter: 2019Q1

REPORT INFORMATION
  Report Type: Spontaneous
  Country: US (occurrence: US)
  Receive Date: 20190209
  Receipt Date: 20190223
  Transmission Date: 20190417
  Serious: No
  Sender: FDA-Public Use
  Company Number: US-JNJFOC-20190130857

PATIENT
  Age: 69 Year
  Sex: Male
  Weight: 84.82 kg

DRUGS (6)
  1. CITRICAL [Concomitant]
     Active Substance: CALCIUM CITRATE
     Route: 065
  2. XARELTO [Suspect]
     Active Substance: RIVAROXABAN
     Indication: PULMONARY EMBOLISM
     Dosage: FIRST 2 WEEKS
     Route: 048
     Dates: start: 20181230
  3. XARELTO [Suspect]
     Active Substance: RIVAROXABAN
     Indication: DEEP VEIN THROMBOSIS
     Dosage: FIRST 2 WEEKS
     Route: 048
     Dates: start: 20181230
  4. XARELTO [Suspect]
     Active Substance: RIVAROXABAN
     Indication: DEEP VEIN THROMBOSIS
     Dosage: WITH FOOD
     Route: 048
     Dates: start: 201901
  5. FISH OIL [Concomitant]
     Active Substance: FISH OIL
     Route: 065
  6. XARELTO [Suspect]
     Active Substance: RIVAROXABAN
     Indication: PULMONARY EMBOLISM
     Dosage: WITH FOOD
     Route: 048
     Dates: start: 201901

REACTIONS (4)
  - Feeling cold [Not Recovered/Not Resolved]
  - Erythema [Recovered/Resolved]
  - Myositis [Recovered/Resolved]
  - Pruritus [Recovered/Resolved]

NARRATIVE: CASE EVENT DATE: 201901
